FAERS Safety Report 14846618 (Version 1)
Quarter: 2018Q2

REPORT INFORMATION
  Report Type: Spontaneous
  Country: CN (occurrence: CN)
  Receive Date: 20180504
  Receipt Date: 20180504
  Transmission Date: 20180711
  Serious: Yes (Other)
  Sender: FDA-Public Use
  Company Number: CN-ASTRAZENECA-2018SE59454

PATIENT
  Sex: Female
  Weight: 72 kg

DRUGS (1)
  1. GEFITINIB. [Suspect]
     Active Substance: GEFITINIB
     Indication: DRUG THERAPY
     Route: 048
     Dates: start: 20171224, end: 20180130

REACTIONS (1)
  - Platelet count decreased [Unknown]
